FAERS Safety Report 5159483-4 (Version None)
Quarter: 2006Q4

REPORT INFORMATION
  Report Type: 
  Country: None (occurrence: None)
  Receive Date: 20061113
  Receipt Date: 20061026
  Transmission Date: 20070319
  Serious: Yes (Disabling)
  Sender: FDA-Public Use
  Company Number: 2006-01569

PATIENT
  Age: 74 Year
  Sex: Male

DRUGS (1)
  1. IMMUCYST [Suspect]
     Indication: CARCINOMA IN SITU OF BLADDER
     Dosage: 81.0 MG  I.VES.
     Route: 043
     Dates: start: 20050928, end: 20051206

REACTIONS (5)
  - DYSURIA [None]
  - HAEMATURIA [None]
  - NASOPHARYNGITIS [None]
  - PROTEIN URINE PRESENT [None]
  - WHITE BLOOD CELLS URINE POSITIVE [None]
